FAERS Safety Report 15012817 (Version 2)
Quarter: 2018Q2

REPORT INFORMATION
  Report Type: Report from Study
  Country: US (occurrence: US)
  Receive Date: 20180614
  Receipt Date: 20180620
  Transmission Date: 20180711
  Serious: Yes (Hospitalization)
  Sender: FDA-Public Use
  Company Number: US-EISAI MEDICAL RESEARCH-EC-2017-034399

PATIENT
  Age: 67 Year
  Sex: Male

DRUGS (4)
  1. HYDROXYZINE [Concomitant]
     Active Substance: HYDROXYZINE HYDROCHLORIDE
  2. BENADRYL [Concomitant]
     Active Substance: DIPHENHYDRAMINE HYDROCHLORIDE
  3. AFINITOR [Concomitant]
     Active Substance: EVEROLIMUS
  4. LENVIMA [Suspect]
     Active Substance: LENVATINIB
     Indication: RENAL CANCER
     Dosage: DISCONTINUATION REPORTED 6/19/2018?NO INDICATION TX WAS RESTARTED.
     Route: 048
     Dates: start: 20171221, end: 20180604

REACTIONS (5)
  - Malignant neoplasm progression [Not Recovered/Not Resolved]
  - Epistaxis [Recovered/Resolved]
  - Pruritus [Not Recovered/Not Resolved]
  - Laboratory test abnormal [Recovered/Resolved]
  - Ulcer haemorrhage [Recovering/Resolving]

NARRATIVE: CASE EVENT DATE: 201712
